FAERS Safety Report 8023309-1 (Version None)
Quarter: 2012Q1

REPORT INFORMATION
  Report Type: 
  Country: None (occurrence: None)
  Receive Date: 20120104
  Receipt Date: 20111216
  Transmission Date: 20120608
  Serious: Yes (Other)
  Sender: FDA-Public Use
  Company Number: ZA-ABBOTT-11P-143-0883005-02

PATIENT
  Sex: Male
  Weight: 37.6 kg

DRUGS (4)
  1. D4T [Concomitant]
     Indication: HIV INFECTION
     Route: 048
     Dates: start: 20090809, end: 20111209
  2. RITONAVIR [Suspect]
     Indication: HIV INFECTION
     Route: 048
     Dates: start: 20090809, end: 20111209
  3. ATAZANAVIR [Concomitant]
     Indication: HIV INFECTION
     Route: 048
     Dates: start: 20090809, end: 20111209
  4. LAMIVUDINE (EPIVIR HBV) [Concomitant]
     Indication: HIV INFECTION
     Route: 048
     Dates: start: 20090809, end: 20111209

REACTIONS (1)
  - BLOOD BILIRUBIN UNCONJUGATED INCREASED [None]
